FAERS Safety Report 24785137 (Version 1)
Quarter: 2024Q4

REPORT INFORMATION
  Report Type: Spontaneous
  Country: US (occurrence: None)
  Receive Date: 20241227
  Receipt Date: 20241227
  Transmission Date: 20250114
  Serious: Yes (Hospitalization)
  Sender: Public
  Company Number: None

PATIENT
  Age: 71 Year
  Sex: Male

DRUGS (1)
  1. BENEFIX [Suspect]
     Active Substance: COAGULATION FACTOR IX RECOMBINANT HUMAN\ISOPROPYL ALCOHOL
     Indication: Factor IX deficiency
     Dosage: 10000  IV??FREQUENCY: SLOW IV PUSH DAILY AS NEEDED FOR BLEEDING EPISODES
     Route: 042
     Dates: start: 202308

REACTIONS (1)
  - Prostatic haemorrhage [None]

NARRATIVE: CASE EVENT DATE: 20241214
